FAERS Safety Report 8232042-2 (Version None)
Quarter: 2012Q1

REPORT INFORMATION
  Report Type: 
  Country: None (occurrence: None)
  Receive Date: 20120321
  Receipt Date: 20120306
  Transmission Date: 20120608
  Serious: Yes (Other)
  Sender: FDA-Public Use
  Company Number: A0969188A

PATIENT
  Age: 16 Year
  Sex: Male

DRUGS (7)
  1. MEROPENEM [Suspect]
     Indication: FEBRILE NEUTROPENIA
     Dosage: 100 MG/KG / PER DAY
  2. IMMUNE GLOBULIN (HUMAN) [Suspect]
  3. AMPHOTERICIN B [Concomitant]
  4. WHOLE BLOOD [Concomitant]
  5. AMIKACIN SULFATE [Suspect]
     Indication: FEBRILE NEUTROPENIA
     Dosage: 15 MG/KG / PER DAY
  6. CEFTAZIDIME SODIUM [Suspect]
     Indication: FEBRILE NEUTROPENIA
     Dosage: 150 MG/KG / PER DAY
  7. VANCOMYCIN [Suspect]
     Indication: FEBRILE NEUTROPENIA
     Dosage: 60 MG/KG / PER DAY

REACTIONS (11)
  - BONE MARROW TRANSPLANT [None]
  - SEPSIS [None]
  - RASH MACULO-PAPULAR [None]
  - RESPIRATORY FAILURE [None]
  - PYREXIA [None]
  - DIARRHOEA [None]
  - THROMBOCYTOPENIA [None]
  - FACE OEDEMA [None]
  - SERUM SICKNESS-LIKE REACTION [None]
  - OEDEMA PERIPHERAL [None]
  - TRANSAMINASES INCREASED [None]
